FAERS Safety Report 7597907-3 (Version None)
Quarter: 2011Q3

REPORT INFORMATION
  Report Type: 
  Country: None (occurrence: None)
  Receive Date: 20110708
  Receipt Date: 20110702
  Transmission Date: 20111222
  Serious: Yes (Death, Hospitalization)
  Sender: FDA-Public Use
  Company Number: DE-ABBOTT-11P-062-0733412-00

PATIENT
  Sex: Female
  Weight: 72.5 kg

DRUGS (2)
  1. ZEMPLAR [Suspect]
     Indication: HYPERPARATHYROIDISM SECONDARY
  2. ZEMPLAR [Suspect]
     Indication: RENAL FAILURE

REACTIONS (2)
  - FEMORAL NECK FRACTURE [None]
  - CARDIOGENIC SHOCK [None]
